FAERS Safety Report 9410898 (Version 1)
Quarter: 2013Q3

REPORT INFORMATION
  Report Type: Spontaneous
  Country: US (occurrence: US)
  Receive Date: 20130719
  Receipt Date: 20130719
  Transmission Date: 20140515
  Serious: No
  Sender: FDA-Public Use
  Company Number: US-009507513-1307USA008428

PATIENT
  Age: 43 Year
  Sex: Male

DRUGS (3)
  1. SAPHRIS [Suspect]
     Dosage: UNK
     Dates: start: 201009
  2. LITHIUM [Concomitant]
  3. XANAX [Concomitant]

REACTIONS (2)
  - Restlessness [Unknown]
  - Product taste abnormal [Unknown]
